FAERS Safety Report 4936416-4 (Version None)
Quarter: 2006Q1

REPORT INFORMATION
  Report Type: 
  Country: None (occurrence: None)
  Receive Date: 20060302
  Receipt Date: 20060213
  Transmission Date: 20060701
  Serious: No
  Sender: FDA-Public Use
  Company Number: USA0510111682

PATIENT
  Age: 54 Year
  Sex: Female
  Weight: 84.4 kg

DRUGS (6)
  1. CYMBALTA [Suspect]
     Indication: DEPRESSION
     Dosage: SEE IMAGE
     Route: 048
     Dates: start: 20041029, end: 20041104
  2. CYMBALTA [Suspect]
     Indication: DEPRESSION
     Dosage: SEE IMAGE
     Route: 048
     Dates: start: 20050803, end: 20050810
  3. CYMBALTA [Suspect]
     Indication: DEPRESSION
     Dosage: SEE IMAGE
     Route: 048
     Dates: start: 20041105
  4. SERZONE [Concomitant]
  5. NEXIUM [Concomitant]
  6. TRAZODONE HCL [Concomitant]

REACTIONS (21)
  - ABDOMINAL DISTENSION [None]
  - ALANINE AMINOTRANSFERASE INCREASED [None]
  - ALCOHOL POISONING [None]
  - ALCOHOLISM [None]
  - ANXIETY [None]
  - ASPARTATE AMINOTRANSFERASE INCREASED [None]
  - BLOOD ALKALINE PHOSPHATASE INCREASED [None]
  - BREATH ODOUR [None]
  - CONSTIPATION [None]
  - COSTOVERTEBRAL ANGLE TENDERNESS [None]
  - DECREASED APPETITE [None]
  - DEPRESSED LEVEL OF CONSCIOUSNESS [None]
  - DERMATITIS CONTACT [None]
  - FOOT FRACTURE [None]
  - HEPATIC FUNCTION ABNORMAL [None]
  - INSOMNIA [None]
  - INTENTIONAL DRUG MISUSE [None]
  - MALAISE [None]
  - NAUSEA [None]
  - PALPITATIONS [None]
  - URINE ABNORMALITY [None]
